FAERS Safety Report 6062970-8 (Version None)
Quarter: 2009Q1

REPORT INFORMATION
  Report Type: 
  Country: None (occurrence: None)
  Receive Date: 20090203
  Receipt Date: 20090130
  Transmission Date: 20090719
  Serious: Yes (Other)
  Sender: FDA-Public Use
  Company Number: A0766408A

PATIENT
  Sex: Male
  Weight: 106.4 kg

DRUGS (1)
  1. AVANDIA [Suspect]

REACTIONS (2)
  - CARDIAC FAILURE CONGESTIVE [None]
  - MYOCARDIAL INFARCTION [None]
